FAERS Safety Report 14914317 (Version 2)
Quarter: 2018Q4

REPORT INFORMATION
  Report Type: Spontaneous
  Country: US (occurrence: US)
  Receive Date: 20180518
  Receipt Date: 20181214
  Transmission Date: 20190204
  Serious: Yes (Disabling)
  Sender: FDA-Public Use
  Company Number: US-OTSUKA-2018_011949

PATIENT
  Sex: Male

DRUGS (16)
  1. RISPERIDONE. [Concomitant]
     Active Substance: RISPERIDONE
     Dosage: 2 DF, QD (BEDTIME)
     Route: 048
     Dates: start: 20090701, end: 20100702
  2. BUPROPION HCL [Concomitant]
     Active Substance: BUPROPION HYDROCHLORIDE
     Indication: PRODUCT USED FOR UNKNOWN INDICATION
     Dosage: 150 MG, QD
     Route: 048
  3. RISPERIDONE. [Concomitant]
     Active Substance: RISPERIDONE
     Indication: PRODUCT USED FOR UNKNOWN INDICATION
     Dosage: 2 DF, QD
     Route: 048
     Dates: start: 20060213, end: 20070214
  4. AMOXICILLIN TRIHYDRATE [Concomitant]
     Active Substance: AMOXICILLIN
     Indication: INFECTION
     Dosage: 1 DF, UNK (EVERY 8 HOURS)
     Route: 048
  5. PRAVASTATIN. [Concomitant]
     Active Substance: PRAVASTATIN
     Indication: BLOOD CHOLESTEROL
     Dosage: 80 MG, QD (BED TIME)
     Route: 048
  6. TESTOSTERONE CYPIONATE. [Concomitant]
     Active Substance: TESTOSTERONE CYPIONATE
     Indication: BLOOD TESTOSTERONE
     Dosage: 200 ML, QW (EVERY 2 WEEKS)
     Route: 030
  7. IBUPROFEN. [Concomitant]
     Active Substance: IBUPROFEN
     Indication: PAIN
     Dosage: 1 DF, QD (EVERY 6 HOURS)
     Route: 048
  8. ASPIRIN. [Concomitant]
     Active Substance: ASPIRIN
     Indication: PRODUCT USED FOR UNKNOWN INDICATION
     Dosage: 81 MG, QD
     Route: 048
  9. ABILIFY [Suspect]
     Active Substance: ARIPIPRAZOLE
     Indication: SCHIZOPHRENIA
     Dosage: 30 MG, UNK
     Route: 065
     Dates: start: 2006, end: 2010
  10. METFORMIN HCL [Concomitant]
     Active Substance: METFORMIN HYDROCHLORIDE
     Indication: DIABETES MELLITUS
     Dosage: 1 DF, BID
     Route: 048
  11. INSULIN GLARGINE [Concomitant]
     Active Substance: INSULIN GLARGINE
     Indication: DIABETES MELLITUS
     Dosage: 68 IU, QD (MORNING)
     Route: 058
  12. OMEPRAZOLE. [Concomitant]
     Active Substance: OMEPRAZOLE
     Indication: PRODUCT USED FOR UNKNOWN INDICATION
     Dosage: 20 MG, QD
     Route: 048
  13. RISPERIDONE. [Concomitant]
     Active Substance: RISPERIDONE
     Dosage: 2 DF, QD (BEDTIME)
     Route: 048
     Dates: start: 20090706, end: 20100707
  14. LISINOPRIL. [Concomitant]
     Active Substance: LISINOPRIL
     Indication: BLOOD PRESSURE MEASUREMENT
     Dosage: 1 DF, QD
     Route: 048
  15. AMLODIPINE BESYLATE. [Concomitant]
     Active Substance: AMLODIPINE BESYLATE
     Indication: BLOOD PRESSURE MEASUREMENT
     Dosage: 10 MG, QD (ONE HALF)
     Route: 048
  16. HYDROCODONE [Concomitant]
     Active Substance: HYDROCODONE
     Indication: PAIN
     Dosage: 5 MG, UNK (EVERY 6 HOURS)
     Route: 048

REACTIONS (34)
  - Blood sodium decreased [Unknown]
  - Red blood cell count decreased [Unknown]
  - Blood glucose increased [Unknown]
  - Pain [Unknown]
  - Condition aggravated [Recovered/Resolved]
  - Disability [Unknown]
  - Alanine aminotransferase decreased [Unknown]
  - Sleep apnoea syndrome [Unknown]
  - Anaemia [Unknown]
  - Gambling disorder [Recovered/Resolved]
  - Injury [Unknown]
  - Blood bilirubin decreased [Unknown]
  - Musculoskeletal pain [Unknown]
  - Obesity [Unknown]
  - Erectile dysfunction [Unknown]
  - Bankruptcy [Unknown]
  - Economic problem [Unknown]
  - Alcoholism [Unknown]
  - Chronic obstructive pulmonary disease [Unknown]
  - Androgen deficiency [Unknown]
  - Drug abuse [Unknown]
  - Haemoglobin decreased [Unknown]
  - Hyperlipidaemia [Unknown]
  - Mean cell haemoglobin increased [Unknown]
  - Mental disorder [Unknown]
  - Blood triglycerides increased [Unknown]
  - Diverticulum [Unknown]
  - Blood urea decreased [Unknown]
  - Blood chloride decreased [Unknown]
  - Hypertension [Unknown]
  - Condition aggravated [Unknown]
  - Large intestine benign neoplasm [Unknown]
  - Gastrooesophageal reflux disease [Unknown]
  - Anxiety [Unknown]

NARRATIVE: CASE EVENT DATE: 200608
